FAERS Safety Report 23547912 (Version 1)
Quarter: 2024Q1

REPORT INFORMATION
  Report Type: Spontaneous
  Country: US (occurrence: US)
  Receive Date: 20240221
  Receipt Date: 20240221
  Transmission Date: 20240410
  Serious: No
  Sender: FDA-Public Use
  Company Number: US-TEVA-VS-3140369

PATIENT
  Age: 42 Year

DRUGS (2)
  1. METOPROLOL [Suspect]
     Active Substance: METOPROLOL
     Indication: Product used for unknown indication
     Route: 065
     Dates: start: 20230826, end: 20230908
  2. METHIMAZOLE [Concomitant]
     Active Substance: METHIMAZOLE
     Dosage: TIME INTERVAL: 0.33333333 DAYS: 10 MG HALF A TABLET THREE TIMES A DAY
     Dates: start: 20230826, end: 20230914

REACTIONS (4)
  - Asthma [Recovered/Resolved]
  - Bronchospasm [Recovered/Resolved]
  - Productive cough [Recovered/Resolved]
  - Cough [Recovered/Resolved]

NARRATIVE: CASE EVENT DATE: 20230101
